FAERS Safety Report 4382693-0 (Version None)
Quarter: 2004Q2

REPORT INFORMATION
  Report Type: 
  Country: None (occurrence: None)
  Receive Date: 20040617
  Receipt Date: 20040609
  Transmission Date: 20050107
  Serious: Yes (Other)
  Sender: FDA-Public Use
  Company Number: USA-2004-0015535

PATIENT
  Age: 6 Year

DRUGS (4)
  1. THEOPHYLLINE [Suspect]
     Indication: ASTHMA
     Dosage: 14 MG/KG, DAILY
  2. CLARITHROMYCIN (CLARITHROMYCN) [Suspect]
  3. KETOTIFEN [Concomitant]
  4. KANPO [Concomitant]

REACTIONS (4)
  - CONVULSION [None]
  - DRUG INTERACTION [None]
  - DRUG LEVEL INCREASED [None]
  - PYREXIA [None]
